FAERS Safety Report 17349034 (Version 1)
Quarter: 2020Q1

REPORT INFORMATION
  Report Type: Spontaneous
  Country: PL (occurrence: PL)
  Receive Date: 20200129
  Receipt Date: 20200129
  Transmission Date: 20200409
  Serious: No
  Sender: FDA-Public Use
  Company Number: PL-EXELIXIS-CABO-19024952

PATIENT
  Age: 45 Year
  Sex: Male

DRUGS (7)
  1. SEVREDOL [Concomitant]
     Active Substance: MORPHINE
  2. NEBILET [Concomitant]
     Active Substance: NEBIVOLOL
  3. EUTHYROX [Concomitant]
     Active Substance: LEVOTHYROXINE SODIUM
  4. RAMIZEK [Concomitant]
  5. MILURIT [Concomitant]
     Active Substance: ALLOPURINOL
  6. CABOMETYX [Suspect]
     Active Substance: CABOZANTINIB S-MALATE
     Indication: CLEAR CELL RENAL CELL CARCINOMA
     Dosage: 60 MG, QD
     Dates: start: 20190803
  7. CABOMETYX [Suspect]
     Active Substance: CABOZANTINIB S-MALATE
     Dosage: 40 MG, QD

REACTIONS (5)
  - Weight decreased [Unknown]
  - Hepatotoxicity [Unknown]
  - Decreased appetite [Recovering/Resolving]
  - Oral fungal infection [Recovered/Resolved]
  - Diarrhoea [Recovering/Resolving]
